FAERS Safety Report 8106033-6 (Version None)
Quarter: 2012Q1

REPORT INFORMATION
  Report Type: 
  Country: None (occurrence: None)
  Receive Date: 20120202
  Receipt Date: 20120124
  Transmission Date: 20120608
  Serious: No
  Sender: FDA-Public Use
  Company Number: US-BIOGENIDEC-2012BI002972

PATIENT
  Age: 36 Year
  Sex: Female

DRUGS (3)
  1. AVONEX [Suspect]
     Indication: MULTIPLE SCLEROSIS
     Route: 030
     Dates: start: 20020720
  2. AVONEX [Suspect]
     Route: 030
     Dates: start: 20060407
  3. AVONEX [Suspect]
     Route: 030
     Dates: start: 20030401

REACTIONS (3)
  - INJECTION SITE MASS [None]
  - BURNING SENSATION [None]
  - CONTUSION [None]
